FAERS Safety Report 10937845 (Version 2)
Quarter: 2015Q2

REPORT INFORMATION
  Report Type: Spontaneous
  Country: US (occurrence: US)
  Receive Date: 20150321
  Receipt Date: 20150525
  Transmission Date: 20150821
  Serious: No
  Sender: FDA-Public Use
  Company Number: US-JNJFOC-20130101949

PATIENT
  Age: 37 Year
  Sex: Male
  Weight: 124.74 kg

DRUGS (1)
  1. STELARA [Suspect]
     Active Substance: USTEKINUMAB
     Indication: PSORIASIS
     Route: 058
     Dates: start: 2012

REACTIONS (3)
  - Underdose [Unknown]
  - Syringe issue [Unknown]
  - Self-medication [Not Recovered/Not Resolved]

NARRATIVE: CASE EVENT DATE: 2012
